FAERS Safety Report 6011198-6 (Version None)
Quarter: 2008Q4

REPORT INFORMATION
  Report Type: 
  Country: None (occurrence: None)
  Receive Date: 20081218
  Receipt Date: 20081210
  Transmission Date: 20090506
  Serious: Yes (Other)
  Sender: FDA-Public Use
  Company Number: JP-MERCK-0812USA02681

PATIENT
  Age: 81 Year
  Sex: Male

DRUGS (1)
  1. PEPCID [Suspect]
     Route: 041
     Dates: start: 20081205, end: 20081209

REACTIONS (1)
  - DEMENTIA [None]
